FAERS Safety Report 6109208-0 (Version None)
Quarter: 2009Q1

REPORT INFORMATION
  Report Type: 
  Country: None (occurrence: None)
  Receive Date: 20090310
  Receipt Date: 20090226
  Transmission Date: 20090719
  Serious: Yes (Other)
  Sender: FDA-Public Use
  Company Number: PHBS2008CN03197

PATIENT
  Age: 26 Year
  Sex: Female

DRUGS (1)
  1. SEBIVO [Suspect]
     Dosage: 600MG/DAY
     Route: 048
     Dates: start: 20071201, end: 20080211

REACTIONS (3)
  - CAESAREAN SECTION [None]
  - DRUG EXPOSURE DURING PREGNANCY [None]
  - HEPATITIS B [None]
